FAERS Safety Report 21104090 (Version 2)
Quarter: 2022Q3

REPORT INFORMATION
  Report Type: Spontaneous
  Country: JP (occurrence: JP)
  Receive Date: 20220720
  Receipt Date: 20220816
  Transmission Date: 20221027
  Serious: Yes (Hospitalization)
  Sender: FDA-Public Use
  Company Number: JP-ELI_LILLY_AND_COMPANY-JP202207005003

PATIENT
  Age: 84 Year
  Sex: Male
  Weight: 60 kg

DRUGS (3)
  1. TRULICITY [Suspect]
     Active Substance: DULAGLUTIDE
     Indication: Type 2 diabetes mellitus
     Dosage: 0.75 MG, WEEKLY (1/W)
     Route: 058
     Dates: start: 20220427, end: 20220711
  2. PREDNISOLONE [Suspect]
     Active Substance: PREDNISOLONE
     Indication: Interstitial lung disease
     Dosage: 20 MG, DAILY
     Route: 065
  3. MITIGLINIDE CALCIUM HYDRATE\VOGLIBOSE [Suspect]
     Active Substance: MITIGLINIDE CALCIUM HYDRATE\VOGLIBOSE
     Indication: Type 2 diabetes mellitus
     Dosage: UNK, TID
     Route: 065
     Dates: start: 20220418, end: 20220617

REACTIONS (1)
  - Pneumatosis intestinalis [Recovering/Resolving]

NARRATIVE: CASE EVENT DATE: 20220613
